FAERS Safety Report 4551984-2 (Version None)
Quarter: 2005Q1

REPORT INFORMATION
  Report Type: 
  Country: None (occurrence: None)
  Receive Date: 20050112
  Receipt Date: 20041123
  Transmission Date: 20050727
  Serious: Yes (Other)
  Sender: FDA-Public Use
  Company Number: 2004098704

PATIENT
  Sex: Female

DRUGS (1)
  1. CELEBREX [Suspect]
     Indication: ILL-DEFINED DISORDER
     Dosage: UNKNOWN (200 MG)
     Route: 065

REACTIONS (9)
  - ARTHRITIS [None]
  - CARDIAC DISORDER [None]
  - CARDITIS [None]
  - DIFFICULTY IN WALKING [None]
  - DYSPNOEA [None]
  - DYSSTASIA [None]
  - MALAISE [None]
  - MUSCLE SPASMS [None]
  - PYREXIA [None]
